FAERS Safety Report 8190720-8 (Version None)
Quarter: 2012Q1

REPORT INFORMATION
  Report Type: 
  Country: None (occurrence: None)
  Receive Date: 20120307
  Receipt Date: 20120227
  Transmission Date: 20120608
  Serious: Yes (Other)
  Sender: FDA-Public Use
  Company Number: US-ROCHE-1020270

PATIENT
  Sex: Male
  Weight: 65.376 kg

DRUGS (2)
  1. IBUPROFEN [Concomitant]
  2. ACCUTANE [Suspect]
     Indication: ACNE
     Dates: start: 20001003, end: 20010202

REACTIONS (5)
  - INFLAMMATORY BOWEL DISEASE [None]
  - COLITIS ULCERATIVE [None]
  - ILEITIS [None]
  - CROHN'S DISEASE [None]
  - DEPRESSION [None]
